FAERS Safety Report 8557647 (Version 3)
Quarter: 2012Q4

REPORT INFORMATION
  Report Type: Report from Study
  Country: CN (occurrence: CN)
  Receive Date: 20120511
  Receipt Date: 20121121
  Transmission Date: 20130627
  Serious: Yes (Death, Life-Threatening, Hospitalization)
  Sender: FDA-Public Use
  Company Number: CN-SANOFI-AVENTIS-2012SA031919

PATIENT
  Age: 70 Year
  Sex: Male
  Weight: 53.5 kg

DRUGS (1)
  1. DOCETAXEL [Suspect]
     Indication: PROSTATE CARCINOMA
     Route: 042
     Dates: start: 20111111, end: 20120207

REACTIONS (1)
  - Acute hepatic failure [Fatal]
